FAERS Safety Report 8083387-0 (Version None)
Quarter: 2012Q1

REPORT INFORMATION
  Report Type: 
  Country: None (occurrence: None)
  Receive Date: 20120127
  Receipt Date: 20110202
  Transmission Date: 20120608
  Serious: No
  Sender: FDA-Public Use
  Company Number: US-ABBOTT-11P-163-0702820-00

PATIENT
  Age: 31 Year
  Sex: Female

DRUGS (4)
  1. METHOTREXATE [Concomitant]
     Indication: PRODUCT USED FOR UNKNOWN INDICATION
     Route: 050
  2. HUMIRA [Suspect]
     Indication: RHEUMATOID ARTHRITIS
     Dates: end: 20110101
  3. HYDROXYCHLOROQUINE SULFATE [Concomitant]
     Indication: PRODUCT USED FOR UNKNOWN INDICATION
     Route: 048
  4. FOLIC ACID [Concomitant]
     Indication: PRODUCT USED FOR UNKNOWN INDICATION
     Route: 048

REACTIONS (1)
  - JOINT SWELLING [None]
